FAERS Safety Report 6161629-6 (Version None)
Quarter: 2009Q2

REPORT INFORMATION
  Report Type: 
  Country: None (occurrence: None)
  Receive Date: 20090421
  Receipt Date: 20090413
  Transmission Date: 20091009
  Serious: Yes (Death)
  Sender: FDA-Public Use
  Company Number: KP-TYCO HEALTHCARE/MALLINCKRODT-T200900816

PATIENT
  Age: 52 Year
  Sex: Female

DRUGS (7)
  1. SODIUM IODIDE I 131 [Suspect]
     Indication: THYROID CANCER
     Dosage: 200 MCI, UNK
  2. SODIUM IODIDE I 131 [Suspect]
     Dosage: 200 MCI, UNK
  3. SODIUM IODIDE I 131 [Suspect]
     Dosage: 200 MCI, UNK
  4. SODIUM IODIDE I 131 [Suspect]
     Dosage: 200 MCI, UNK
  5. SODIUM IODIDE I 131 [Suspect]
     Dosage: 200 MCI, UNK
  6. SODIUM IODIDE I 131 [Suspect]
     Dosage: 200 MCI, UNK
  7. SODIUM IODIDE I 131 [Suspect]
     Dosage: 200 MCI, UNK

REACTIONS (1)
  - REFRACTORY CYTOPENIA WITH MULTILINEAGE DYSPLASIA [None]
